FAERS Safety Report 9160894 (Version 1)
Quarter: 2013Q1

REPORT INFORMATION
  Report Type: Spontaneous
  Country: US (occurrence: US)
  Receive Date: 20130313
  Receipt Date: 20130313
  Transmission Date: 20140127
  Serious: No
  Sender: FDA-Public Use
  Company Number: US-BAYER-2013-029992

PATIENT
  Age: 49 Year
  Sex: Male

DRUGS (3)
  1. LEVITRA [Suspect]
     Indication: ERECTILE DYSFUNCTION
     Dosage: UNK, PRN
     Route: 048
     Dates: start: 2011, end: 20130305
  2. DIOVAN [VALSARTAN] [Concomitant]
  3. ZOCOR [Concomitant]

REACTIONS (2)
  - Drug ineffective [None]
  - Drug ineffective [None]
